FAERS Safety Report 8056703-3 (Version None)
Quarter: 2012Q1

REPORT INFORMATION
  Report Type: 
  Country: None (occurrence: None)
  Receive Date: 20120119
  Receipt Date: 20120112
  Transmission Date: 20120608
  Serious: Yes (Other)
  Sender: FDA-Public Use
  Company Number: US-PFIZER INC-2012010804

PATIENT
  Sex: Female
  Weight: 107 kg

DRUGS (7)
  1. ASCORBIC ACID [Concomitant]
     Dosage: UNK, DAILY
  2. LITHIUM [Concomitant]
     Indication: BIPOLAR DISORDER
  3. CELEBREX [Suspect]
     Indication: SPINAL OSTEOARTHRITIS
  4. CELEBREX [Suspect]
     Indication: OSTEOARTHRITIS
     Dosage: 200 MG, DAILY
     Route: 048
  5. TOPROL-XL [Concomitant]
     Indication: CARDIAC DISORDER
     Dosage: 100 MG, DAILY
  6. FISH OIL [Concomitant]
     Dosage: 1000 MG, DAILY
  7. LITHIUM [Concomitant]
     Indication: DEPRESSION
     Dosage: 300 MG, 2X/DAY

REACTIONS (3)
  - DRUG INEFFECTIVE [None]
  - GAIT DISTURBANCE [None]
  - PAIN [None]
